FAERS Safety Report 11911583 (Version 1)
Quarter: 2016Q1

REPORT INFORMATION
  Report Type: Report from Study
  Country: AR (occurrence: AR)
  Receive Date: 20160112
  Receipt Date: 20160112
  Transmission Date: 20160526
  Serious: Yes (Other)
  Sender: FDA-Public Use
  Company Number: PHHY2016AR002486

PATIENT
  Sex: Female

DRUGS (3)
  1. TEGRETOL [Suspect]
     Active Substance: CARBAMAZEPINE
     Indication: EPILEPSY
     Dosage: 2 OT, QD
     Route: 065
  2. TEGRETOL [Suspect]
     Active Substance: CARBAMAZEPINE
     Dosage: 2 OT, QD
     Route: 065
  3. ONBREZ BREEZHALER [Suspect]
     Active Substance: INDACATEROL
     Indication: CHRONIC OBSTRUCTIVE PULMONARY DISEASE
     Dosage: 1 OT, QD
     Route: 065

REACTIONS (8)
  - Peripheral swelling [Not Recovered/Not Resolved]
  - Cataract [Not Recovered/Not Resolved]
  - Dyspnoea [Not Recovered/Not Resolved]
  - Maculopathy [Not Recovered/Not Resolved]
  - Asphyxia [Not Recovered/Not Resolved]
  - Seizure [Not Recovered/Not Resolved]
  - Gait disturbance [Not Recovered/Not Resolved]
  - Malaise [Unknown]
